FAERS Safety Report 8158254-4 (Version None)
Quarter: 2012Q1

REPORT INFORMATION
  Report Type: 
  Country: None (occurrence: None)
  Receive Date: 20120223
  Receipt Date: 20120215
  Transmission Date: 20120608
  Serious: Yes (Life-Threatening, Hospitalization, Disabling, Other)
  Sender: FDA-Public Use
  Company Number: ES-BIOGENIDEC-2012BI004235

PATIENT
  Age: 53 Year
  Sex: Male
  Weight: 75 kg

DRUGS (6)
  1. LORAZEPAM [Concomitant]
     Route: 048
     Dates: start: 20120131
  2. FUROSEMIDE [Concomitant]
     Route: 048
     Dates: start: 20120131
  3. TYSABRI [Suspect]
     Indication: MULTIPLE SCLEROSIS
     Route: 042
     Dates: start: 20090416, end: 20111202
  4. ACETAMINOPHEN [Concomitant]
     Route: 048
     Dates: start: 20120131
  5. DEXAMETHASONE [Concomitant]
     Route: 048
     Dates: start: 20120131
  6. OMEPRAZOLE [Concomitant]
     Route: 048
     Dates: start: 20120131

REACTIONS (1)
  - BRAIN NEOPLASM [None]
